FAERS Safety Report 19610807 (Version 1)
Quarter: 2021Q3

REPORT INFORMATION
  Report Type: Spontaneous
  Country: ES (occurrence: GB)
  Receive Date: 20210726
  Receipt Date: 20210726
  Transmission Date: 20211014
  Serious: Yes (Disabling, Other)
  Sender: FDA-Public Use
  Company Number: GB-BRECKENRIDGE PHARMACEUTICAL, INC.-2114275

PATIENT
  Age: 22 Year
  Sex: Female
  Weight: 69 kg

DRUGS (14)
  1. VITAMIN C [Concomitant]
     Active Substance: ASCORBIC ACID
  2. COD LIVER OIL [Concomitant]
     Active Substance: COD LIVER OIL
  3. HEMP [Concomitant]
     Active Substance: HEMP
  4. MAGNESIUM [Concomitant]
     Active Substance: MAGNESIUM
  5. EVENING PRIMROSE OIL [Concomitant]
     Active Substance: EVENING PRIMROSE OIL\HERBALS
  6. FEXOFENADINE HYDROCHLORIDE. [Concomitant]
     Active Substance: FEXOFENADINE HYDROCHLORIDE
  7. DULOXETINE. [Suspect]
     Active Substance: DULOXETINE
     Indication: ARTHRALGIA
     Route: 048
     Dates: start: 20210110, end: 20210715
  8. OMEPRAZOLE. [Concomitant]
     Active Substance: OMEPRAZOLE
  9. CO?CODAMOL (CODEINE PHOSPHATE; PARACETAMOL) [Concomitant]
  10. CODEINE [Concomitant]
     Active Substance: CODEINE
  11. MULTIVITAMIN [Concomitant]
     Active Substance: VITAMINS
  12. NEFOPAM HYDROCHLORIDE [Concomitant]
     Active Substance: NEFOPAM HYDROCHLORIDE
  13. PARACETAMOL [Concomitant]
     Active Substance: ACETAMINOPHEN
  14. RIGEVIDON (ETHINYLESTRADIOL; LEVONORGESTREL) [Concomitant]

REACTIONS (4)
  - Heat stroke [Recovering/Resolving]
  - Epistaxis [Recovering/Resolving]
  - Pruritus [Recovering/Resolving]
  - Skin burning sensation [Recovering/Resolving]
